FAERS Safety Report 5009499-3 (Version None)
Quarter: 2006Q2

REPORT INFORMATION
  Report Type: 
  Country: None (occurrence: None)
  Receive Date: 20060524
  Receipt Date: 20060515
  Transmission Date: 20061013
  Serious: Yes (Hospitalization)
  Sender: FDA-Public Use
  Company Number: US-ABBOTT-06P-163-0333155-00

PATIENT
  Sex: Male

DRUGS (7)
  1. HUMIRA [Suspect]
     Indication: RHEUMATOID ARTHRITIS
     Route: 058
     Dates: start: 20040501
  2. SULFASALAZINE [Concomitant]
     Indication: RHEUMATOID ARTHRITIS
  3. PREDNISONE TAB [Concomitant]
     Indication: RHEUMATOID ARTHRITIS
  4. MONTELUKAST SODIUM [Concomitant]
     Indication: ASTHMA
  5. SERETIDE MITE [Concomitant]
     Indication: DRUG USE FOR UNKNOWN INDICATION
  6. FAMOTIDINE [Concomitant]
     Indication: DRUG USE FOR UNKNOWN INDICATION
  7. SALBUTAMOL [Concomitant]
     Indication: DRUG USE FOR UNKNOWN INDICATION

REACTIONS (4)
  - BRAIN ABSCESS [None]
  - CEREBROVASCULAR ACCIDENT [None]
  - NEUROLOGICAL SYMPTOM [None]
  - STAPHYLOCOCCAL INFECTION [None]
